FAERS Safety Report 4804697-3 (Version None)
Quarter: 2005Q4

REPORT INFORMATION
  Report Type: 
  Country: None (occurrence: None)
  Receive Date: 20051020
  Receipt Date: 20051013
  Transmission Date: 20060501
  Serious: Yes (Life-Threatening)
  Sender: FDA-Public Use
  Company Number: JP-JNJFOC-20051000767

PATIENT
  Sex: Male

DRUGS (2)
  1. CRAVIT [Suspect]
     Indication: URINARY TRACT INFECTION
     Route: 048
     Dates: start: 20050801, end: 20050905
  2. PREDONINE [Concomitant]
     Route: 048

REACTIONS (1)
  - INTERSTITIAL LUNG DISEASE [None]
